FAERS Safety Report 7457337-1 (Version None)
Quarter: 2011Q2

REPORT INFORMATION
  Report Type: 
  Country: None (occurrence: None)
  Receive Date: 20110504
  Receipt Date: 20100907
  Transmission Date: 20111010
  Serious: Yes (Hospitalization)
  Sender: FDA-Public Use
  Company Number: US-KINGPHARMUSA00001-K201001135

PATIENT
  Age: 78 Year
  Sex: Female
  Weight: 49.887 kg

DRUGS (4)
  1. ANTIHYPERTENSIVE [Concomitant]
     Indication: HYPERTENSION
     Dosage: UNK
  2. HYDROCODONE BITARTRATE [Concomitant]
     Indication: BACK PAIN
     Dosage: UNK
  3. AVINZA [Suspect]
     Indication: BACK PAIN
     Dosage: UNK, QD
     Dates: start: 20080101, end: 20100701
  4. AVINZA [Suspect]
     Dosage: UNK
     Dates: start: 20100101, end: 20100801

REACTIONS (3)
  - DRUG WITHDRAWAL SYNDROME [None]
  - VOMITING [None]
  - DEHYDRATION [None]
